FAERS Safety Report 7257294-7 (Version None)
Quarter: 2011Q1

REPORT INFORMATION
  Report Type: 
  Country: None (occurrence: None)
  Receive Date: 20110129
  Receipt Date: 20100805
  Transmission Date: 20110831
  Serious: No
  Sender: FDA-Public Use
  Company Number: US-ABBOTT-10P-163-0656396-00

PATIENT
  Sex: Male
  Weight: 81.72 kg

DRUGS (6)
  1. MEDROL [Concomitant]
     Indication: CROHN'S DISEASE
  2. ASACOL [Concomitant]
     Indication: CROHN'S DISEASE
  3. ACIPHEX [Concomitant]
     Indication: PRODUCT USED FOR UNKNOWN INDICATION
  4. HUMIRA [Suspect]
     Indication: CROHN'S DISEASE
     Route: 058
     Dates: start: 20070101
  5. LOVAZA [Concomitant]
     Indication: PRODUCT USED FOR UNKNOWN INDICATION
  6. SIMCOR [Concomitant]
     Indication: PRODUCT USED FOR UNKNOWN INDICATION

REACTIONS (3)
  - INTESTINAL OBSTRUCTION [None]
  - DRUG INEFFECTIVE [None]
  - INFLAMMATION [None]
